FAERS Safety Report 5431591-X (Version None)
Quarter: 2007Q3

REPORT INFORMATION
  Report Type: 
  Country: None (occurrence: None)
  Receive Date: 20070828
  Receipt Date: 20070815
  Transmission Date: 20080115
  Serious: Yes (Hospitalization)
  Sender: FDA-Public Use
  Company Number: 236469K06USA

PATIENT
  Age: 54 Year
  Sex: Male

DRUGS (1)
  1. REBIF [Suspect]
     Indication: MULTIPLE SCLEROSIS
     Dosage: 30 MCG, 3IN 1 WEEKS, SUBCUTANEOUS)
     Route: 058
     Dates: start: 20060830

REACTIONS (5)
  - ESCHERICHIA URINARY TRACT INFECTION [None]
  - INJECTION SITE ERYTHEMA [None]
  - INJECTION SITE IRRITATION [None]
  - URINARY TRACT INFECTION PSEUDOMONAL [None]
  - URINARY TRACT INFECTION STAPHYLOCOCCAL [None]
